FAERS Safety Report 24110216 (Version 1)
Quarter: 2024Q3

REPORT INFORMATION
  Report Type: Spontaneous
  Country: US (occurrence: US)
  Receive Date: 20240718
  Receipt Date: 20240718
  Transmission Date: 20241017
  Serious: No
  Sender: BAYER
  Company Number: US-BAYER-2024A103610

PATIENT
  Sex: Male

DRUGS (1)
  1. MIRALAX [Suspect]
     Active Substance: POLYETHYLENE GLYCOL 3350
     Indication: Medical procedure
     Dosage: 4 OUNCES OF MIRALAX MIXED WITH 32 OUNCES OF WATER. DOSE
     Route: 048

REACTIONS (2)
  - Off label use [Unknown]
  - Extra dose administered [Unknown]
